FAERS Safety Report 9593184 (Version 1)
Quarter: 2013Q4

REPORT INFORMATION
  Report Type: Spontaneous
  Country: GB (occurrence: GB)
  Receive Date: 20131004
  Receipt Date: 20131004
  Transmission Date: 20140711
  Serious: Yes (Hospitalization)
  Sender: FDA-Public Use
  Company Number: PHHY2013GB107245

PATIENT
  Age: 61 Year
  Sex: Female

DRUGS (2)
  1. CISPLATIN [Suspect]
     Indication: CHEMOTHERAPY
  2. VINORELBINE [Suspect]
     Indication: CHEMOTHERAPY

REACTIONS (6)
  - Glomerular filtration rate decreased [Recovered/Resolved]
  - Hypomagnesaemia [Recovered/Resolved]
  - Hypokalaemia [Recovered/Resolved]
  - Nausea [Recovered/Resolved]
  - Diarrhoea [Recovered/Resolved]
  - Fatigue [Recovered/Resolved]
